FAERS Safety Report 8049915-6 (Version None)
Quarter: 2012Q1

REPORT INFORMATION
  Report Type: 
  Country: None (occurrence: None)
  Receive Date: 20120117
  Receipt Date: 20120109
  Transmission Date: 20120608
  Serious: Yes (Other)
  Sender: FDA-Public Use
  Company Number: US-BAYER-2011-013460

PATIENT
  Age: 21 Year
  Sex: Female

DRUGS (3)
  1. SYNTHROID [Concomitant]
     Indication: HYPOTHYROIDISM
  2. YAZ [Suspect]
     Indication: CONTRACEPTION
     Dosage: UNK
     Route: 048
     Dates: start: 20071001, end: 20081001
  3. TOPAMAX [Concomitant]
     Indication: MIGRAINE

REACTIONS (2)
  - CHOLECYSTITIS [None]
  - CHOLELITHIASIS [None]
